FAERS Safety Report 4706913-5 (Version None)
Quarter: 2005Q3

REPORT INFORMATION
  Report Type: 
  Country: None (occurrence: None)
  Receive Date: 20050701
  Receipt Date: 20050623
  Transmission Date: 20060218
  Serious: Yes (Life-Threatening, Other)
  Sender: FDA-Public Use
  Company Number: USA-2005-0020649

PATIENT
  Sex: Male

DRUGS (2)
  1. OXYCONTIN [Suspect]
     Dosage: 60 MG, DAILY,
  2. LORTAB [Suspect]
     Dosage: 6 TABLET, DAILY,

REACTIONS (4)
  - ARTHRITIS [None]
  - CARDIAC FAILURE [None]
  - CARDIAC TAMPONADE [None]
  - PERICARDIAL EFFUSION [None]
